FAERS Safety Report 13149470 (Version 2)
Quarter: 2017Q1

REPORT INFORMATION
  Report Type: Report from Study
  Country: US (occurrence: US)
  Receive Date: 20170124
  Receipt Date: 20170124
  Transmission Date: 20170428
  Serious: No
  Sender: FDA-Public Use
  Company Number: US-AMGEN-USASL2016185391

PATIENT
  Age: 75 Year
  Sex: Female

DRUGS (1)
  1. REPATHA [Suspect]
     Active Substance: EVOLOCUMAB
     Indication: BLOOD CHOLESTEROL ABNORMAL
     Dosage: 140 MG, Q2WK
     Route: 065

REACTIONS (8)
  - Dyspnoea [Unknown]
  - Erythema [Unknown]
  - Arthralgia [Unknown]
  - Gait disturbance [Unknown]
  - Pain [Unknown]
  - Peripheral swelling [Unknown]
  - Abdominal discomfort [Unknown]
  - Pain in extremity [Unknown]

NARRATIVE: CASE EVENT DATE: 20161223
